FAERS Safety Report 7425848-0 (Version None)
Quarter: 2011Q2

REPORT INFORMATION
  Report Type: 
  Country: None (occurrence: None)
  Receive Date: 20110420
  Receipt Date: 20110412
  Transmission Date: 20111010
  Serious: Yes (Hospitalization, Other)
  Sender: FDA-Public Use
  Company Number: GB-ROCHE-582706

PATIENT
  Sex: Female
  Weight: 59 kg

DRUGS (12)
  1. CITALOPRAM HYDROBROMIDE [Concomitant]
     Route: 048
  2. ATORVASTATIN [Concomitant]
     Route: 048
     Dates: start: 20030905
  3. BEVACIZUMAB [Suspect]
     Route: 042
     Dates: start: 20080418
  4. CARBOPLATIN [Suspect]
     Route: 042
     Dates: start: 20080418
  5. METOCLOPRAMIDE [Concomitant]
     Dosage: DOSAGE REGIMEN NOT REPORTED DUE TO ILLEGIBLE HAND-WRITING.
     Route: 048
     Dates: start: 20080418
  6. ASPIRIN [Concomitant]
     Route: 048
     Dates: start: 20030905
  7. SENOKOT [Concomitant]
     Dosage: DOSE: 7.5 MG AT NIGHT
     Route: 048
     Dates: start: 20080418
  8. CALCICHEW [Concomitant]
     Route: 048
     Dates: start: 20030905
  9. PACLITAXEL [Suspect]
     Route: 042
     Dates: start: 20080418
  10. BENDROFLUAZIDE [Concomitant]
     Route: 048
     Dates: start: 20030905
  11. LANSOPRAZOLE [Concomitant]
     Route: 048
     Dates: start: 20080418
  12. DEXAMETHASONE [Concomitant]
     Route: 048
     Dates: start: 20080418, end: 20080821

REACTIONS (2)
  - CONVULSION [None]
  - SYNCOPE [None]
